FAERS Safety Report 6550289 (Version 3)
Quarter: 2025Q2

REPORT INFORMATION
  Report Type: Spontaneous
  Country: US (occurrence: US)
  Receive Date: 20080211
  Receipt Date: 20250527
  Transmission Date: 20250717
  Serious: Yes (Hospitalization, Other)
  Sender: PFIZER
  Company Number: PFIZER INC-2008011154

PATIENT
  Age: 69 Year
  Sex: Male

DRUGS (2)
  1. CISPLATIN [Suspect]
     Active Substance: CISPLATIN
     Indication: Oesophageal carcinoma
  2. IRINOTECAN HYDROCHLORIDE [Suspect]
     Active Substance: IRINOTECAN HYDROCHLORIDE
     Indication: Oesophageal carcinoma

REACTIONS (4)
  - Portal venous gas [Recovering/Resolving]
  - Pneumatosis intestinalis [Recovering/Resolving]
  - Gastrointestinal toxicity [Recovering/Resolving]
  - Off label use [Unknown]
